FAERS Safety Report 5302811-7 (Version None)
Quarter: 2007Q1

REPORT INFORMATION
  Report Type: 
  Country: None (occurrence: None)
  Receive Date: 20070201
  Receipt Date: 20061127
  Transmission Date: 20070707
  Serious: No
  Sender: FDA-Public Use
  Company Number: 2006PV025942

PATIENT
  Age: 58 Year
  Sex: Male
  Weight: 96.6162 kg

DRUGS (13)
  1. BYETTA [Suspect]
     Indication: DIABETES MELLITUS NON-INSULIN-DEPENDENT
     Dosage: SEE IMAGE
     Route: 058
     Dates: start: 20051101, end: 20060801
  2. BYETTA [Suspect]
     Indication: DIABETES MELLITUS NON-INSULIN-DEPENDENT
     Dosage: SEE IMAGE
     Route: 058
     Dates: start: 20060801, end: 20061123
  3. ZOCOR [Concomitant]
  4. TRICOR [Concomitant]
  5. AVANDIA [Concomitant]
  6. LANTUS [Concomitant]
  7. PLAVIX [Concomitant]
  8. METOPROLOL SUCCINATE [Concomitant]
  9. ALTACE [Concomitant]
  10. LASIX [Concomitant]
  11. LYRICA [Concomitant]
  12. POTASSIUM ACETATE [Concomitant]
  13. ACTOPLUS MET [Concomitant]

REACTIONS (3)
  - BLOOD GLUCOSE INCREASED [None]
  - EYE SWELLING [None]
  - VISION BLURRED [None]
